FAERS Safety Report 23190205 (Version 1)
Quarter: 2023Q4

REPORT INFORMATION
  Report Type: Spontaneous
  Country: US (occurrence: US)
  Receive Date: 20231116
  Receipt Date: 20231116
  Transmission Date: 20240110
  Serious: Yes (Other)
  Sender: FDA-Public Use
  Company Number: US-AMGEN-USASP2023200080

PATIENT
  Age: 60 Year
  Sex: Female

DRUGS (14)
  1. RITUXIMAB [Suspect]
     Active Substance: RITUXIMAB
     Indication: Immune tolerance induction
     Dosage: UNK
     Route: 065
  2. FILGRASTIM [Suspect]
     Active Substance: FILGRASTIM
     Indication: Engraftment syndrome
     Dosage: 5 MICROGRAM PER KILOGRAM, QD
     Route: 065
  3. DARATUMUMAB [Concomitant]
     Active Substance: DARATUMUMAB
     Indication: Immune tolerance induction
     Dosage: 16 MILLIGRAM PER KILOGRAM FOR NINE DOSES
     Route: 042
  4. BORTEZOMIB [Concomitant]
     Active Substance: BORTEZOMIB
     Indication: Immune tolerance induction
     Dosage: 1. MILLIGRAM PER METER SQUARE FOR EIGHT DOSES
     Route: 058
  5. HUMAN IMMUNOGLOBULIN G [Concomitant]
     Active Substance: HUMAN IMMUNOGLOBULIN G
     Dosage: UNK
     Route: 065
  6. TACROLIMUS [Concomitant]
     Active Substance: TACROLIMUS
     Indication: Graft versus host disease
     Dosage: 1 MILLIGRAM
     Route: 042
  7. TACROLIMUS [Concomitant]
     Active Substance: TACROLIMUS
     Indication: Immunosuppression
  8. MYCOPHENOLATE MOFETIL [Concomitant]
     Active Substance: MYCOPHENOLATE MOFETIL
     Indication: Graft versus host disease
     Dosage: 1 GRAM, BID
     Route: 065
  9. MYCOPHENOLATE MOFETIL [Concomitant]
     Active Substance: MYCOPHENOLATE MOFETIL
     Indication: Immunosuppression
  10. THIOTEPA [Concomitant]
     Active Substance: THIOTEPA
     Dosage: 5 MILLIGRAM PER KILOGRAM, QD
  11. BUSULFAN [Concomitant]
     Active Substance: BUSULFAN
     Indication: Immunosuppression
     Dosage: 3.2 MILLIGRAM PER KILOGRAM, QD
     Route: 065
  12. FLUDARABINE [Concomitant]
     Active Substance: FLUDARABINE PHOSPHATE
     Indication: Immunosuppression
     Dosage: 50 MILLIGRAM PER SQUARE METER
  13. CYCLOPHOSPHAMIDE [Concomitant]
     Active Substance: CYCLOPHOSPHAMIDE
     Indication: Graft versus host disease
     Dosage: 50 MILLIGRAM PER KILOGRAM, QD
     Route: 065
  14. CYCLOPHOSPHAMIDE [Concomitant]
     Active Substance: CYCLOPHOSPHAMIDE
     Indication: Immunosuppression

REACTIONS (3)
  - Myelofibrosis [Unknown]
  - Drug ineffective for unapproved indication [Unknown]
  - Off label use [Unknown]
